FAERS Safety Report 15524058 (Version 3)
Quarter: 2018Q4

REPORT INFORMATION
  Report Type: Spontaneous
  Country: GB (occurrence: GB)
  Receive Date: 20181019
  Receipt Date: 20181103
  Transmission Date: 20190205
  Serious: Yes (Death)
  Sender: FDA-Public Use
  Company Number: GB-TEVA-2018-GB-966677

PATIENT
  Age: 44 Year
  Sex: Female

DRUGS (12)
  1. COCODAMOL [Suspect]
     Active Substance: ACETAMINOPHEN\CODEINE PHOSPHATE
     Indication: BACK PAIN
     Dosage: UNK UNK, UNK
     Route: 065
  2. OXYCODONE [Suspect]
     Active Substance: OXYCODONE
     Indication: BACK PAIN
     Dosage: UNK UNK, UNK
     Route: 065
  3. HYDROXYZINE [Suspect]
     Active Substance: HYDROXYZINE HYDROCHLORIDE
     Indication: PRODUCT USED FOR UNKNOWN INDICATION
     Dosage: UNK UNK, UNK
     Route: 065
  4. CHLORDIAZEPOXIDE. [Suspect]
     Active Substance: CHLORDIAZEPOXIDE
     Indication: PRODUCT USED FOR UNKNOWN INDICATION
     Route: 065
  5. PREGABALIN. [Suspect]
     Active Substance: PREGABALIN
     Indication: BACK PAIN
  6. NYTOL [Suspect]
     Active Substance: DIPHENHYDRAMINE HYDROCHLORIDE
     Indication: INSOMNIA
     Dosage: UNK UNK, UNK
     Route: 065
  7. DIAZEPAM. [Suspect]
     Active Substance: DIAZEPAM
     Indication: INSOMNIA
     Dosage: UNK UNK, UNK
     Route: 065
  8. DIAZEPAM. [Suspect]
     Active Substance: DIAZEPAM
     Indication: PAIN
  9. AMITRIPTYLINE HYDROCHLORIDE. [Suspect]
     Active Substance: AMITRIPTYLINE HYDROCHLORIDE
     Indication: PRODUCT USED FOR UNKNOWN INDICATION
     Dosage: UNK UNK, UNK
     Route: 065
  10. PREGABALIN. [Suspect]
     Active Substance: PREGABALIN
     Indication: ANXIETY
     Dosage: UNK UNK, UNK
     Route: 065
  11. CODEINE [Suspect]
     Active Substance: CODEINE
     Dosage: UNK UNK, UNK
     Route: 065
  12. FLUOXETINE [Suspect]
     Active Substance: FLUOXETINE HYDROCHLORIDE
     Indication: DEPRESSION
     Dosage: UNK UNK, UNK
     Route: 065

REACTIONS (2)
  - Toxicity to various agents [Fatal]
  - Accidental overdose [Fatal]
